FAERS Safety Report 6422917-9 (Version None)
Quarter: 2009Q4

REPORT INFORMATION
  Report Type: 
  Country: None (occurrence: None)
  Receive Date: 20091102
  Receipt Date: 20091023
  Transmission Date: 20100525
  Serious: Yes (Hospitalization, Other)
  Sender: FDA-Public Use
  Company Number: BR-ABBOTT-09P-020-0604737-00

PATIENT
  Sex: Female
  Weight: 65 kg

DRUGS (4)
  1. HUMIRA [Suspect]
     Indication: RHEUMATOID ARTHRITIS
     Route: 058
     Dates: start: 20090303, end: 20090901
  2. HUMIRA [Suspect]
     Route: 058
     Dates: start: 20091001
  3. CHLOROQUINE/CARISOPRODOL/ACETAMINOPHEN/FAMOTIDINE/MELOXICAM/PREDNISONE [Concomitant]
     Indication: RHEUMATOID ARTHRITIS
     Dosage: 125MG/100MG/300MG/40MG/7.5MG/5MG.
     Route: 048
     Dates: start: 20081201
  4. OMEPRAZOLE [Concomitant]
     Indication: GASTRIC DISORDER
     Dosage: ONE A DAY
     Route: 048
     Dates: start: 20081201

REACTIONS (1)
  - UTERINE PROLAPSE [None]
